FAERS Safety Report 17550549 (Version 1)
Quarter: 2020Q1

REPORT INFORMATION
  Report Type: Spontaneous
  Country: CA (occurrence: CA)
  Receive Date: 20200317
  Receipt Date: 20200317
  Transmission Date: 20200409
  Serious: Yes (Disabling, Other)
  Sender: FDA-Public Use
  Company Number: NVSC2020CA071557

PATIENT
  Age: 62 Year
  Sex: Male
  Weight: 76 kg

DRUGS (1)
  1. CIPRODEX [Suspect]
     Active Substance: CIPROFLOXACIN HYDROCHLORIDE\DEXAMETHASONE
     Indication: EAR CANAL ERYTHEMA
     Dosage: 4 GTT, BID
     Route: 001

REACTIONS (3)
  - Ear discomfort [Recovering/Resolving]
  - Tympanic membrane perforation [Recovering/Resolving]
  - Ear pain [Recovering/Resolving]
